FAERS Safety Report 9335642 (Version 1)
Quarter: 2013Q2

REPORT INFORMATION
  Report Type: Spontaneous
  Country: ES (occurrence: ES)
  Receive Date: 20130605
  Receipt Date: 20130605
  Transmission Date: 20140414
  Serious: Yes (Other)
  Sender: FDA-Public Use
  Company Number: PHHY2013ES055606

PATIENT
  Age: 2 Year
  Sex: Male

DRUGS (2)
  1. AZITHROMYCIN [Suspect]
     Indication: AURICULAR SWELLING
  2. AZITHROMYCIN [Suspect]
     Indication: TRACHEOBRONCHITIS

REACTIONS (4)
  - Irritability [Unknown]
  - Nightmare [Unknown]
  - Middle insomnia [Unknown]
  - Aggression [Recovered/Resolved]
